FAERS Safety Report 5895520-7 (Version None)
Quarter: 2008Q3

REPORT INFORMATION
  Report Type: 
  Country: None (occurrence: None)
  Receive Date: 20080819
  Receipt Date: 20080414
  Transmission Date: 20090109
  Serious: Yes (Other)
  Sender: FDA-Public Use
  Company Number: 558935

PATIENT
  Age: 53 Year
  Sex: Male

DRUGS (7)
  1. GANCICLOVIR SODIUM [Suspect]
     Indication: CYTOMEGALOVIRUS INFECTION
     Dosage: 5 MG/KG 1 PER 12 HOUR INTRAVENOUS
     Route: 042
  2. VALGANCICLOVIR HCL [Suspect]
     Indication: CYTOMEGALOVIRUS INFECTION
     Dosage: 450 MG DAILY ORAL
     Route: 048
  3. MYCOPHENOLATE MOFETIL [Suspect]
     Indication: IMMUNOSUPPRESSION
     Dosage: 2 GRAM DAILY
  4. LEFLUNOMIDE [Suspect]
     Indication: DRUG USE FOR UNKNOWN INDICATION
  5. TACROLIMUS [Concomitant]
  6. PREDNISONE [Concomitant]
  7. METHYLPREDNISOLONE 16MG TAB [Concomitant]

REACTIONS (4)
  - BK VIRUS INFECTION [None]
  - CYTOMEGALOVIRUS INFECTION [None]
  - DIARRHOEA [None]
  - LEUKOPENIA [None]
